FAERS Safety Report 7003586-6 (Version None)
Quarter: 2010Q3

REPORT INFORMATION
  Report Type: 
  Country: None (occurrence: None)
  Receive Date: 20100920
  Receipt Date: 20100903
  Transmission Date: 20110219
  Serious: Yes (Hospitalization)
  Sender: FDA-Public Use
  Company Number: BR-US-EMD SERONO, INC.-7017367

PATIENT
  Sex: Female

DRUGS (3)
  1. REBIF [Suspect]
     Indication: RELAPSING-REMITTING MULTIPLE SCLEROSIS
     Route: 058
     Dates: start: 20090504
  2. CORTICOSTEROIDS [Suspect]
  3. ANALGESICS [Concomitant]

REACTIONS (3)
  - DIZZINESS [None]
  - MULTIPLE SCLEROSIS RELAPSE [None]
  - WEIGHT INCREASED [None]
